FAERS Safety Report 14913239 (Version 1)
Quarter: 2018Q2

REPORT INFORMATION
  Report Type: Spontaneous
  Country: FR (occurrence: FR)
  Receive Date: 20180518
  Receipt Date: 20180518
  Transmission Date: 20180711
  Serious: Yes (Hospitalization, Other)
  Sender: FDA-Public Use
  Company Number: PHHY2018FR000782

PATIENT
  Sex: Male

DRUGS (9)
  1. HYDROCORTISONE. [Suspect]
     Active Substance: HYDROCORTISONE
     Indication: ACUTE LYMPHOCYTIC LEUKAEMIA
     Dosage: 15 MG, QD
     Route: 037
     Dates: start: 20180129
  2. PEGASPARGASE [Suspect]
     Active Substance: PEGASPARGASE
     Indication: ACUTE LYMPHOCYTIC LEUKAEMIA
     Dosage: 1075 IU, QD
     Route: 042
     Dates: start: 20180209, end: 20180209
  3. CYTARABINE. [Suspect]
     Active Substance: CYTARABINE
     Indication: ACUTE LYMPHOCYTIC LEUKAEMIA
     Dosage: 65 MG, QD
     Route: 042
     Dates: start: 20180129
  4. CYTARABINE. [Suspect]
     Active Substance: CYTARABINE
     Dosage: 30 MG, QD
     Route: 037
     Dates: start: 20180129
  5. 6-MERCAPTOPURINE MONOHYDRATE [Suspect]
     Active Substance: MERCAPTOPURINE
     Dosage: 51.6 MG, QD
     Route: 048
     Dates: start: 20180209
  6. VINCRISTINE [Suspect]
     Active Substance: VINCRISTINE
     Indication: ACUTE LYMPHOCYTIC LEUKAEMIA
     Dosage: 1.3 MG, QD
     Route: 042
     Dates: start: 20180209
  7. 6-MERCAPTOPURINE MONOHYDRATE [Suspect]
     Active Substance: MERCAPTOPURINE
     Indication: ACUTE LYMPHOCYTIC LEUKAEMIA
     Dosage: 51.6 MG, QD
     Route: 048
     Dates: start: 20180126
  8. METHOTREXATE. [Suspect]
     Active Substance: METHOTREXATE
     Indication: ACUTE LYMPHOCYTIC LEUKAEMIA
     Dosage: 12 MG, QD
     Route: 037
     Dates: start: 20180129
  9. CYCLOPHOSPHAMIDE. [Suspect]
     Active Substance: CYCLOPHOSPHAMIDE
     Indication: ACUTE LYMPHOCYTIC LEUKAEMIA
     Dosage: 860 MG, QD
     Route: 042
     Dates: start: 20180126, end: 20180126

REACTIONS (1)
  - Febrile bone marrow aplasia [Recovering/Resolving]

NARRATIVE: CASE EVENT DATE: 20180217
